FAERS Safety Report 20363205 (Version 1)
Quarter: 2022Q1

REPORT INFORMATION
  Report Type: Other
  Country: DE (occurrence: None)
  Receive Date: 20220121
  Receipt Date: 20220121
  Transmission Date: 20220423
  Serious: Yes (Other)
  Sender: FDA-Public Use
  Company Number: DE-ROCHE-3007385

PATIENT
  Age: 76 Year
  Sex: Female

DRUGS (2)
  1. BEVACIZUMAB [Suspect]
     Active Substance: BEVACIZUMAB
     Indication: Retinal vein occlusion
     Dosage: 4 INTRAVITREAL INJECTIONS
     Route: 050
  2. DEXAMETHASONE [Suspect]
     Active Substance: DEXAMETHASONE
     Indication: Retinal vein occlusion
     Dosage: IMPLANT?4 INTRAVITREAL INJECTIONS
     Route: 065

REACTIONS (3)
  - Retinopathy proliferative [Unknown]
  - Off label use [Unknown]
  - Off label use [Unknown]
